FAERS Safety Report 17491686 (Version 1)
Quarter: 2020Q1

REPORT INFORMATION
  Report Type: Spontaneous
  Country: IT (occurrence: IT)
  Receive Date: 20200304
  Receipt Date: 20200304
  Transmission Date: 20200409
  Serious: Yes (Other)
  Sender: FDA-Public Use
  Company Number: IT-ASTRAZENECA-2019SF18566

PATIENT
  Age: 57 Year
  Sex: Female

DRUGS (3)
  1. VALDORM (FLURAZEPAM HYDROCHLORIDE) [Suspect]
     Active Substance: FLURAZEPAM HYDROCHLORIDE
     Route: 065
  2. QUETIAPINE. [Suspect]
     Active Substance: QUETIAPINE
     Route: 048
  3. MIRTAZAPINE. [Suspect]
     Active Substance: MIRTAZAPINE
     Route: 048

REACTIONS (2)
  - Suicidal ideation [Recovering/Resolving]
  - Sopor [Recovering/Resolving]

NARRATIVE: CASE EVENT DATE: 20190811
